FAERS Safety Report 23740241 (Version 3)
Quarter: 2024Q3

REPORT INFORMATION
  Report Type: Report from Study
  Country: US (occurrence: US)
  Receive Date: 20240414
  Receipt Date: 20240705
  Transmission Date: 20241017
  Serious: Yes (Disabling, Other)
  Sender: ABBVIE
  Company Number: US-ABBVIE-5717514

PATIENT
  Age: 67 Year
  Sex: Female
  Weight: 131.08 kg

DRUGS (4)
  1. SKYRIZI [Suspect]
     Active Substance: RISANKIZUMAB-RZAA
     Indication: Arthritis
     Dosage: FORM STRENGTH: 150MILLIGRAM
     Route: 058
     Dates: start: 20230512
  2. SKYRIZI [Suspect]
     Active Substance: RISANKIZUMAB-RZAA
     Indication: Psoriasis
     Dosage: FORM STRENGTH: 150MILLIGRAM
     Route: 058
     Dates: start: 20230426
  3. SKYRIZI [Suspect]
     Active Substance: RISANKIZUMAB-RZAA
     Indication: Psoriasis
  4. OZEMPIC [Concomitant]
     Active Substance: SEMAGLUTIDE
     Indication: Weight increased

REACTIONS (8)
  - Intervertebral disc compression [Not Recovered/Not Resolved]
  - Dysstasia [Not Recovered/Not Resolved]
  - Intervertebral disc protrusion [Unknown]
  - Hypoaesthesia [Not Recovered/Not Resolved]
  - Burning sensation [Recovering/Resolving]
  - Pain in extremity [Not Recovered/Not Resolved]
  - Back pain [Not Recovered/Not Resolved]
  - Arthralgia [Unknown]

NARRATIVE: CASE EVENT DATE: 20230101
